FAERS Safety Report 6174788-6 (Version None)
Quarter: 2009Q2

REPORT INFORMATION
  Report Type: 
  Country: None (occurrence: None)
  Receive Date: 20090430
  Receipt Date: 20080924
  Transmission Date: 20091009
  Serious: No
  Sender: FDA-Public Use
  Company Number: US-ASTRAZENECA-2008UW20166

PATIENT
  Sex: Male

DRUGS (11)
  1. NEXIUM [Suspect]
     Indication: GASTROOESOPHAGEAL REFLUX DISEASE
     Route: 048
     Dates: start: 20030101, end: 20080924
  2. NEXIUM [Suspect]
     Route: 048
     Dates: start: 20080924
  3. BONIVA [Concomitant]
  4. CRESTOR [Concomitant]
  5. SYNTHROID [Concomitant]
  6. ACTOS [Concomitant]
  7. METFORMIN HCL [Concomitant]
  8. FLOMAX [Concomitant]
  9. AVAPRO [Concomitant]
  10. MIRAPEX [Concomitant]
  11. PARCOPA [Concomitant]

REACTIONS (2)
  - BLOOD CALCIUM DECREASED [None]
  - GASTROOESOPHAGEAL REFLUX DISEASE [None]
